FAERS Safety Report 16396615 (Version 1)
Quarter: 2019Q2

REPORT INFORMATION
  Report Type: Report from Study
  Country: None (occurrence: US)
  Receive Date: 20190606
  Receipt Date: 20190606
  Transmission Date: 20190711
  Serious: Yes (Death, Hospitalization)
  Sender: FDA-Public Use
  Company Number: US-ABBVIE-19K-163-2806589-00

PATIENT
  Age: 66 Year
  Sex: Female

DRUGS (1)
  1. HUMIRA [Suspect]
     Active Substance: ADALIMUMAB
     Indication: PSORIASIS
     Route: 058
     Dates: start: 200910

REACTIONS (5)
  - Renal failure [Fatal]
  - Septic shock [Fatal]
  - Urinary tract infection [Recovered/Resolved]
  - Influenza like illness [Unknown]
  - Pneumonia [Fatal]

NARRATIVE: CASE EVENT DATE: 2019
